FAERS Safety Report 21205333 (Version 1)
Quarter: 2022Q3

REPORT INFORMATION
  Report Type: Spontaneous
  Country: US (occurrence: US)
  Receive Date: 20220812
  Receipt Date: 20220812
  Transmission Date: 20221027
  Serious: No
  Sender: FDA-Public Use
  Company Number: US-MACLEODS PHARMACEUTICALS US LTD-MAC2022036768

PATIENT

DRUGS (1)
  1. CLOBETASOL PROPIONATE [Suspect]
     Active Substance: CLOBETASOL PROPIONATE
     Indication: Alopecia scarring
     Dosage: 1 DOSAGE FORM, BID (TWICE A DAY FOR 14 DAYS, 0.05% W/W (NDC: 33342-321-86, GTIN: 10333342321869 AND
     Route: 061

REACTIONS (5)
  - Vasodilatation [Recovered/Resolved]
  - Pain [Recovered/Resolved]
  - Headache [Recovered/Resolved]
  - Burning sensation [Recovered/Resolved]
  - Product substitution issue [Unknown]
